FAERS Safety Report 11112175 (Version 1)
Quarter: 2015Q2

REPORT INFORMATION
  Report Type: Spontaneous
  Country: None (occurrence: None)
  Receive Date: 20150513
  Receipt Date: 20150513
  Transmission Date: 20150821
  Serious: No
  Sender: FDA-Public Use
  Company Number: None

PATIENT
  Age: 37 Year
  Sex: Female
  Weight: 53.98 kg

DRUGS (2)
  1. AMETHYST [Suspect]
     Active Substance: ETHINYL ESTRADIOL\LEVONORGESTREL
     Indication: DYSMENORRHOEA
     Dosage: 1 PILL
     Route: 048
  2. IBUPROFEN. [Concomitant]
     Active Substance: IBUPROFEN

REACTIONS (8)
  - Urethral pain [None]
  - Dysuria [None]
  - Bladder pain [None]
  - Blood urine present [None]
  - Cystitis [None]
  - Urinary tract infection [None]
  - Pollakiuria [None]
  - Erythema [None]

NARRATIVE: CASE EVENT DATE: 20140303
